FAERS Safety Report 9819784 (Version 2)
Quarter: 2014Q1

REPORT INFORMATION
  Report Type: Spontaneous
  Country: JP (occurrence: JP)
  Receive Date: 20140116
  Receipt Date: 20140318
  Transmission Date: 20141002
  Serious: Yes (Hospitalization, Other)
  Sender: FDA-Public Use
  Company Number: JP-ROCHE-1331745

PATIENT
  Sex: Female

DRUGS (4)
  1. HERCEPTIN [Suspect]
     Indication: BREAST CANCER RECURRENT
     Route: 041
     Dates: start: 2013, end: 20131010
  2. XELODA [Suspect]
     Indication: BREAST CANCER RECURRENT
     Route: 048
     Dates: start: 2013, end: 20131010
  3. TAXOTERE [Suspect]
     Indication: BREAST CANCER RECURRENT
     Dosage: DOSAGE IS UNCERTAIN.
     Route: 041
     Dates: start: 2013, end: 2013
  4. TAXOTERE [Suspect]
     Indication: BREAST CANCER RECURRENT
     Dosage: DOSAGE IS UNCERTAIN.
     Route: 041
     Dates: start: 2013, end: 2013

REACTIONS (3)
  - Hepatic function abnormal [Recovered/Resolved]
  - Spondylitis [Recovered/Resolved]
  - Bone marrow failure [Recovered/Resolved]
